FAERS Safety Report 20845339 (Version 1)
Quarter: 2022Q2

REPORT INFORMATION
  Report Type: Spontaneous
  Country: US (occurrence: US)
  Receive Date: 20220518
  Receipt Date: 20220518
  Transmission Date: 20220721
  Serious: Yes (Death, Hospitalization, Other)
  Sender: FDA-Public Use
  Company Number: US-AMGEN-USASP2022083093

PATIENT

DRUGS (1)
  1. FILGRASTIM [Suspect]
     Active Substance: FILGRASTIM
     Indication: Haematopoietic stem cell mobilisation
     Dosage: 5 TO 10 MICROGRAM/KILOGRAM
     Route: 058

REACTIONS (38)
  - Death [Fatal]
  - Pneumonia legionella [Fatal]
  - Cerebrovascular accident [Fatal]
  - Myocardial infarction [Fatal]
  - Colon cancer [Fatal]
  - T-cell lymphoma [Fatal]
  - Acute respiratory failure [Fatal]
  - Neuromyelitis optica spectrum disorder [Fatal]
  - Neutropenia [Unknown]
  - Clostridium test positive [Recovered/Resolved]
  - Clostridium difficile colitis [Recovered/Resolved]
  - Mucosal infection [Recovered/Resolved]
  - Oral herpes [Recovered/Resolved]
  - Staphylococcal infection [Recovered/Resolved]
  - Klebsiella bacteraemia [Unknown]
  - Oral candidiasis [Recovered/Resolved]
  - Vulvovaginal candidiasis [Recovered/Resolved]
  - Sinusitis bacterial [Recovered/Resolved]
  - Otitis media bacterial [Recovered/Resolved]
  - Upper respiratory tract infection bacterial [Recovered/Resolved]
  - Respiratory syncytial virus infection [Recovered/Resolved]
  - Rhinovirus infection [Recovered/Resolved]
  - Influenza [Recovered/Resolved]
  - Parainfluenzae virus infection [Recovered/Resolved]
  - Pneumonia [Recovered/Resolved]
  - Urinary tract infection bacterial [Recovered/Resolved]
  - Urinary tract infection viral [Recovered/Resolved]
  - Viral haemorrhagic cystitis [Recovered/Resolved]
  - Adenoviral haemorrhagic cystitis [Recovered/Resolved]
  - Skin bacterial infection [Recovered/Resolved]
  - Varicella zoster virus infection [Recovered/Resolved]
  - Cytomegalovirus infection reactivation [Recovered/Resolved]
  - Immune thrombocytopenia [Recovered/Resolved]
  - Thyroiditis [Unknown]
  - Basedow^s disease [Unknown]
  - Multiple sclerosis [Unknown]
  - Central nervous system lesion [Unknown]
  - Treatment noncompliance [Unknown]
